FAERS Safety Report 11059543 (Version 3)
Quarter: 2016Q3

REPORT INFORMATION
  Report Type: Report from Study
  Country: CN (occurrence: CN)
  Receive Date: 20150423
  Receipt Date: 20160812
  Transmission Date: 20161109
  Serious: Yes (Death, Life-Threatening)
  Sender: FDA-Public Use
  Company Number: CN-AMGEN-CHNCT2015006757

PATIENT
  Age: 76 Year
  Sex: Male
  Weight: 71 kg

DRUGS (16)
  1. CARFILZOMIB [Suspect]
     Active Substance: CARFILZOMIB
     Indication: PLASMA CELL MYELOMA
     Dosage: 20 MG/M2, PER CHEMO REGIM
     Route: 042
     Dates: start: 20150120, end: 20150121
  2. GRANISETRON HYDROCHLORIDE. [Concomitant]
     Active Substance: GRANISETRON HYDROCHLORIDE
     Indication: NAUSEA
     Dosage: 1 MG, AS NECESSARY
     Route: 048
     Dates: start: 20150120, end: 20150120
  3. FUROSEMIDE. [Concomitant]
     Active Substance: FUROSEMIDE
     Indication: POLYURIA
  4. GRANISETRON HYDROCHLORIDE. [Concomitant]
     Active Substance: GRANISETRON HYDROCHLORIDE
     Indication: VOMITING
  5. COENZYME Q10 [Concomitant]
     Active Substance: UBIDECARENONE
     Indication: PROPHYLAXIS
     Dosage: 10 MG, TID
     Route: 048
     Dates: start: 20150120, end: 20150123
  6. MELPHALAN [Suspect]
     Active Substance: MELPHALAN
     Indication: PLASMA CELL MYELOMA
     Dosage: 10 MG, PER CHEMO REGIM
     Route: 048
     Dates: start: 20150120, end: 20150121
  7. CHENG RUI [Concomitant]
     Indication: INTESTINAL OBSTRUCTION
     Dosage: 1 OTHER, QD
     Route: 050
     Dates: start: 20150119, end: 20150119
  8. FUROSEMIDE. [Concomitant]
     Active Substance: FUROSEMIDE
     Indication: RENAL FAILURE
     Dosage: 20-120 MG, AS NECESSARY DAILY
     Route: 042
     Dates: start: 20150119, end: 20150121
  9. FUROSEMIDE. [Concomitant]
     Active Substance: FUROSEMIDE
     Indication: OLIGURIA
  10. ALDEHYDES AND DERIVATIVES [Concomitant]
     Indication: AZOTAEMIA
     Dosage: 5-10 G, QD
     Route: 048
     Dates: start: 20150119, end: 20150123
  11. CETYLPYRIDINIUM CHLORIDE. [Concomitant]
     Active Substance: CETYLPYRIDINIUM CHLORIDE
     Indication: DRY MOUTH
     Dosage: 240 ML, AS NECESSARY
     Route: 061
     Dates: start: 20150120, end: 20150120
  12. INSULIN INJECTION [Concomitant]
     Active Substance: INSULIN NOS
     Indication: BLOOD GLUCOSE DECREASED
     Dosage: 4 IU, QD
     Route: 058
     Dates: start: 20150121, end: 20150122
  13. GLUCOSE [Concomitant]
     Active Substance: DEXTROSE
     Dosage: 50-100 ML, AS NECESSARY
     Route: 042
     Dates: start: 20150120, end: 20150121
  14. PREDNISONE. [Suspect]
     Active Substance: PREDNISONE
     Indication: PLASMA CELL MYELOMA
     Dosage: 110 MG, PER CHEMO REGIM
     Route: 048
     Dates: start: 20150120, end: 20150121
  15. SODIUM BICARBONATE. [Concomitant]
     Active Substance: SODIUM BICARBONATE
     Indication: URINE ABNORMALITY
     Dosage: 1 G-100 ML, BID AND QD
     Dates: start: 20150119, end: 20150122
  16. OMEPRAZOLE. [Concomitant]
     Active Substance: OMEPRAZOLE
     Indication: PROPHYLAXIS
     Dosage: 40 MG, QD
     Route: 042
     Dates: start: 20150120, end: 20150123

REACTIONS (1)
  - Acute kidney injury [Fatal]

NARRATIVE: CASE EVENT DATE: 20150122
